FAERS Safety Report 6048780-6 (Version None)
Quarter: 2009Q1

REPORT INFORMATION
  Report Type: 
  Country: None (occurrence: None)
  Receive Date: 20090123
  Receipt Date: 20090121
  Transmission Date: 20090719
  Serious: Yes (Life-Threatening, Hospitalization, Other)
  Sender: FDA-Public Use
  Company Number: US-MERCK-0810USA04975

PATIENT
  Sex: Female
  Weight: 104 kg

DRUGS (6)
  1. JANUMET [Suspect]
     Indication: TYPE 2 DIABETES MELLITUS
     Route: 048
     Dates: start: 20081015, end: 20081020
  2. PRINIVIL [Concomitant]
     Route: 048
  3. PLAVIX [Concomitant]
     Route: 065
  4. METOPROLOL [Concomitant]
     Route: 065
  5. LOVASTATIN [Concomitant]
     Route: 065
  6. ULTRAM [Concomitant]
     Route: 065

REACTIONS (2)
  - BLOOD CREATININE INCREASED [None]
  - RENAL FAILURE [None]
